FAERS Safety Report 18932751 (Version 1)
Quarter: 2021Q1

REPORT INFORMATION
  Report Type: Spontaneous
  Country: US (occurrence: US)
  Receive Date: 20210223
  Receipt Date: 20210223
  Transmission Date: 20210420
  Serious: Yes (Hospitalization)
  Sender: FDA-Public Use
  Company Number: None

PATIENT
  Age: 62 Year
  Sex: Female

DRUGS (2)
  1. CAPECITABINE 500 MG TAB [Suspect]
     Active Substance: CAPECITABINE
     Indication: BREAST CANCER
     Dosage: OTHER FREQUENCY:4TAB QAM;?
     Route: 048
     Dates: start: 20201208
  2. BUPROPN HCL [Concomitant]
     Active Substance: BUPROPION HYDROCHLORIDE

REACTIONS (7)
  - Fatigue [None]
  - Pain in extremity [None]
  - Lip discolouration [None]
  - Dry mouth [None]
  - Dyspnoea [None]
  - Paraesthesia [None]
  - Skin discolouration [None]

NARRATIVE: CASE EVENT DATE: 20210216
